FAERS Safety Report 13715191 (Version 1)
Quarter: 2017Q3

REPORT INFORMATION
  Report Type: Spontaneous
  Country: BR (occurrence: BR)
  Receive Date: 20170704
  Receipt Date: 20170704
  Transmission Date: 20171127
  Serious: Yes (Hospitalization)
  Sender: FDA-Public Use
  Company Number: PHHY2017BR095469

PATIENT
  Sex: Female

DRUGS (4)
  1. LAMITOR [Suspect]
     Active Substance: LAMOTRIGINE
     Indication: PRODUCT USED FOR UNKNOWN INDICATION
     Dosage: UNK
     Route: 065
  2. TEGRETOL [Suspect]
     Active Substance: CARBAMAZEPINE
     Indication: SEIZURE
     Dosage: 400 MG, UNK
     Route: 065
  3. TEGRETOL [Suspect]
     Active Substance: CARBAMAZEPINE
     Indication: SEIZURE
     Dosage: 2 DF, QD
     Route: 065
  4. PHENOBARBITAL. [Concomitant]
     Active Substance: PHENOBARBITAL
     Indication: PRODUCT USED FOR UNKNOWN INDICATION
     Dosage: 1 DF, QD
     Route: 065

REACTIONS (10)
  - Malnutrition [Unknown]
  - Malaise [Unknown]
  - Aphthous ulcer [Unknown]
  - Diarrhoea [Unknown]
  - Dehydration [Unknown]
  - Weight decreased [Unknown]
  - Hypersensitivity [Unknown]
  - Motor dysfunction [Unknown]
  - Decreased appetite [Unknown]
  - Dysgeusia [Unknown]
